FAERS Safety Report 24796872 (Version 2)
Quarter: 2025Q3

REPORT INFORMATION
  Report Type: Report from Study
  Country: US (occurrence: US)
  Receive Date: 20250101
  Receipt Date: 20250809
  Transmission Date: 20251021
  Serious: Yes (Other)
  Sender: ALEXION PHARMACEUTICALS
  Company Number: US-009507513-2412USA009783

PATIENT

DRUGS (1)
  1. LYNPARZA [Suspect]
     Active Substance: OLAPARIB

REACTIONS (6)
  - Renal failure [Unknown]
  - Headache [Unknown]
  - Pyrexia [Unknown]
  - Nausea [Unknown]
  - Diarrhoea [Unknown]
  - Anaemia [Unknown]
